FAERS Safety Report 21387429 (Version 1)
Quarter: 2022Q3

REPORT INFORMATION
  Report Type: Spontaneous
  Country: US (occurrence: None)
  Receive Date: 20220926
  Receipt Date: 20220926
  Transmission Date: 20221027
  Serious: No
  Sender: FDA-Public Use
  Company Number: None

PATIENT
  Age: 79 Year
  Sex: Female
  Weight: 104.01 kg

DRUGS (11)
  1. IBRANCE [Suspect]
     Active Substance: PALBOCICLIB
     Indication: Breast cancer female
     Dosage: FREQUENCY : AS DIRECTED;?
     Route: 048
     Dates: start: 202110
  2. ALBUTEROL [Concomitant]
     Active Substance: ALBUTEROL
  3. DONEPEZIL [Concomitant]
     Active Substance: DONEPEZIL
  4. HYDROCHLOROTHIAZIDE\IRBESARTAN [Concomitant]
     Active Substance: HYDROCHLOROTHIAZIDE\IRBESARTAN
  5. LATANOPROST [Concomitant]
     Active Substance: LATANOPROST
  6. MONTELUKAST [Concomitant]
     Active Substance: MONTELUKAST SODIUM
  7. VITAMINS [Concomitant]
     Active Substance: VITAMINS
  8. DEVICE [Concomitant]
     Active Substance: DEVICE
  9. VITAMIN B12 [Concomitant]
     Active Substance: CYANOCOBALAMIN
  10. VITAMIN C [Concomitant]
     Active Substance: ASCORBIC ACID
  11. VITAMIN D3 [Concomitant]
     Active Substance: CHOLECALCIFEROL

REACTIONS (2)
  - Embolism [None]
  - Therapy interrupted [None]
